FAERS Safety Report 8170725-3 (Version None)
Quarter: 2012Q1

REPORT INFORMATION
  Report Type: 
  Country: None (occurrence: None)
  Receive Date: 20120228
  Receipt Date: 20120213
  Transmission Date: 20120608
  Serious: Yes (Hospitalization)
  Sender: FDA-Public Use
  Company Number: US-ROCHE-1039995

PATIENT
  Sex: Male
  Weight: 80.994 kg

DRUGS (9)
  1. FLUOROURACIL [Suspect]
     Dosage: DRUG REPORTED AS 5FU CL PUMP DOSE REPORTED AS 5064 LAST DOSE PRIOR TO SAE: 01/FEB/2012
     Route: 042
     Dates: start: 20111219
  2. AVASTIN [Suspect]
     Indication: COLORECTAL CANCER METASTATIC
     Dosage: LAST DOSE PRIOR TO SAE 30/JAN/2012
     Route: 042
     Dates: start: 20111219
  3. OXALIPLATIN [Suspect]
     Indication: COLORECTAL CANCER METASTATIC
     Dosage: LAST DOSE PRIOR TO SAE: 30/JAN/2002
     Route: 042
     Dates: start: 20111219
  4. MEGESTROL ACETATE [Concomitant]
     Indication: WEIGHT DECREASED
     Dates: start: 20120201
  5. SIMVASTATIN [Concomitant]
     Indication: BLOOD CHOLESTEROL
     Dates: start: 20090101
  6. LEUCOVORIN CALCIUM [Suspect]
     Indication: COLORECTAL CANCER METASTATIC
     Dosage: LAST DOSE PRIOR TO SAE: 30/JAN/2002
     Route: 042
     Dates: start: 20111219
  7. ARIXTRA [Concomitant]
     Indication: PULMONARY EMBOLISM
     Dates: start: 20120206
  8. FLUOROURACIL [Suspect]
     Indication: COLORECTAL CANCER METASTATIC
     Dosage: LAST DOSE PRIOR TO SAE: 30/JAN/2002
     Route: 042
     Dates: start: 20111219
  9. METMAB [Suspect]
     Indication: COLORECTAL CANCER METASTATIC
     Dosage: LAST DOSE PRIOR TO SAE: 30/JAN/2002
     Route: 042
     Dates: start: 20111219

REACTIONS (1)
  - PALPITATIONS [None]
